FAERS Safety Report 5407506-7 (Version None)
Quarter: 2007Q3

REPORT INFORMATION
  Report Type: 
  Country: None (occurrence: None)
  Receive Date: 20070807
  Receipt Date: 20070726
  Transmission Date: 20080115
  Serious: Yes (Hospitalization)
  Sender: FDA-Public Use
  Company Number: US-GENENTECH-243955

PATIENT
  Sex: Female

DRUGS (14)
  1. BEVACIZUMAB [Suspect]
     Indication: OVARIAN CANCER
     Dosage: 15 MG/KG, UNK
     Route: 042
     Dates: start: 20060630, end: 20070627
  2. PACLITAXEL [Concomitant]
     Indication: OVARIAN CANCER
  3. CISPLATIN [Concomitant]
     Indication: OVARIAN CANCER
  4. ACETAMINOPHEN [Concomitant]
     Indication: DRUG USE FOR UNKNOWN INDICATION
     Dates: start: 20060630
  5. AMBIEN [Concomitant]
     Indication: DRUG USE FOR UNKNOWN INDICATION
     Dates: start: 20060714
  6. ESCITALOPRAM OXALATE [Concomitant]
     Indication: DRUG USE FOR UNKNOWN INDICATION
     Dosage: 40 MG, UNK
     Dates: start: 20070516
  7. HYDROMORPHONE HCL [Concomitant]
     Indication: DRUG USE FOR UNKNOWN INDICATION
     Dates: start: 20061121
  8. IBUPROFEN [Concomitant]
     Indication: DRUG USE FOR UNKNOWN INDICATION
     Dosage: 200 MG, UNK
     Dates: start: 20060714
  9. LEVOTHYROXINE SODIUM [Concomitant]
     Indication: DRUG USE FOR UNKNOWN INDICATION
     Dosage: 100 MG, UNK
     Dates: start: 20060714
  10. LORAZEPAM [Concomitant]
     Indication: DRUG USE FOR UNKNOWN INDICATION
     Dosage: 0.5 MG, UNK
     Dates: start: 20070314
  11. MAGNESIUM HYDROXIDE TAB [Concomitant]
     Indication: DRUG USE FOR UNKNOWN INDICATION
     Dosage: UNK, UNK
     Dates: start: 20061018
  12. NASAL SPRAY NOS [Concomitant]
     Indication: DRUG USE FOR UNKNOWN INDICATION
     Dates: start: 20061213
  13. ACETAMINOPHEN AND OXYCODONE HCL [Concomitant]
     Indication: DRUG USE FOR UNKNOWN INDICATION
     Dosage: 1 TABLET, UNK
     Dates: start: 20061101
  14. POTASSIUM CHLORIDE [Concomitant]
     Indication: DRUG USE FOR UNKNOWN INDICATION
     Dosage: 20 MEQ, UNK
     Dates: start: 20070516

REACTIONS (1)
  - SMALL INTESTINAL OBSTRUCTION [None]
